FAERS Safety Report 4987255-X (Version None)
Quarter: 2006Q2

REPORT INFORMATION
  Report Type: 
  Country: None (occurrence: None)
  Receive Date: 20060501
  Receipt Date: 20060109
  Transmission Date: 20061013
  Serious: Yes (Death, Hospitalization)
  Sender: FDA-Public Use
  Company Number: US-MERCK-0601USA01260

PATIENT
  Age: 66 Year
  Sex: Female

DRUGS (1)
  1. VIOXX [Suspect]
     Route: 048

REACTIONS (6)
  - CEREBROVASCULAR ACCIDENT [None]
  - DIABETES MELLITUS [None]
  - ELECTROMECHANICAL DISSOCIATION [None]
  - HYPOKALAEMIA [None]
  - MYOCARDIAL INFARCTION [None]
  - RENAL FAILURE [None]
